FAERS Safety Report 7202676-2 (Version None)
Quarter: 2010Q4

REPORT INFORMATION
  Report Type: 
  Country: None (occurrence: None)
  Receive Date: 20101229
  Receipt Date: 20101216
  Transmission Date: 20110411
  Serious: Yes (Death)
  Sender: FDA-Public Use
  Company Number: FI-ACTELION-A-CH2010-42844

PATIENT
  Sex: Male

DRUGS (2)
  1. TRACLEER [Suspect]
     Indication: PULMONARY ARTERIAL HYPERTENSION
     Dosage: UNK , UNK
     Route: 048
  2. REVATIO [Concomitant]

REACTIONS (3)
  - BLOOD ALCOHOL INCREASED [None]
  - FALL [None]
  - HEAD INJURY [None]
